FAERS Safety Report 16426278 (Version 1)
Quarter: 2019Q2

REPORT INFORMATION
  Report Type: Report from Study
  Country: None (occurrence: US)
  Receive Date: 20190613
  Receipt Date: 20190613
  Transmission Date: 20190711
  Serious: Yes (Other)
  Sender: FDA-Public Use
  Company Number: US-ABBVIE-18K-163-2540903-00

PATIENT
  Sex: Female

DRUGS (2)
  1. HUMIRA [Suspect]
     Active Substance: ADALIMUMAB
     Indication: ARTHRITIS ENTEROPATHIC
     Route: 058
     Dates: start: 201807
  2. HUMIRA [Suspect]
     Active Substance: ADALIMUMAB
     Indication: CROHN^S DISEASE

REACTIONS (1)
  - Hernia [Unknown]

NARRATIVE: CASE EVENT DATE: 2018
